FAERS Safety Report 5811301-4 (Version None)
Quarter: 2008Q3

REPORT INFORMATION
  Report Type: 
  Country: None (occurrence: None)
  Receive Date: 20080710
  Receipt Date: 20080704
  Transmission Date: 20090109
  Serious: Yes (Death)
  Sender: FDA-Public Use
  Company Number: 2008-180423-NL

PATIENT
  Age: 25 Year
  Sex: Female

DRUGS (3)
  1. NUVARING [Suspect]
     Indication: CONTRACEPTION
     Dosage: DF VAGINAL
     Route: 067
     Dates: start: 20071112, end: 20071201
  2. NUVARING [Suspect]
     Indication: HAEMORRHAGIC DISORDER
     Dosage: DF VAGINAL
     Route: 067
     Dates: start: 20071112, end: 20071201
  3. ANTIBIOTICS [Concomitant]

REACTIONS (6)
  - FALL [None]
  - METASTASES TO ABDOMINAL CAVITY [None]
  - METASTASES TO LIVER [None]
  - METASTASES TO LUNG [None]
  - METASTASES TO SPINE [None]
  - RENAL CELL CARCINOMA STAGE IV [None]
